FAERS Safety Report 21091065 (Version 3)
Quarter: 2022Q4

REPORT INFORMATION
  Report Type: Report from Study
  Country: IN (occurrence: IN)
  Receive Date: 20220716
  Receipt Date: 20221024
  Transmission Date: 20230113
  Serious: Yes (Hospitalization)
  Sender: FDA-Public Use
  Company Number: IN-002147023-NVSC2022IN158326

PATIENT
  Age: 42 Year
  Sex: Female

DRUGS (3)
  1. ERENUMAB [Suspect]
     Active Substance: ERENUMAB
     Indication: Migraine prophylaxis
     Dosage: 70 MILLIGRAM, QMO
     Route: 058
     Dates: start: 20220514
  2. ERENUMAB [Suspect]
     Active Substance: ERENUMAB
     Dosage: UNK (SECOND DOSE)
     Route: 058
     Dates: start: 20220612
  3. ERENUMAB [Suspect]
     Active Substance: ERENUMAB
     Dosage: UNK (THIRD DOSE)
     Route: 058
     Dates: start: 20220919

REACTIONS (3)
  - Migraine [Unknown]
  - Hypertension [Unknown]
  - Inappropriate schedule of product administration [Unknown]

NARRATIVE: CASE EVENT DATE: 20220624
